FAERS Safety Report 12549571 (Version 1)
Quarter: 2016Q3

REPORT INFORMATION
  Report Type: Spontaneous
  Country: US (occurrence: US)
  Receive Date: 20160712
  Receipt Date: 20160712
  Transmission Date: 20161109
  Serious: No
  Sender: FDA-Public Use
  Company Number: US-PFIZER INC-2016307651

PATIENT
  Age: 54 Year
  Sex: Male
  Weight: 88 kg

DRUGS (3)
  1. SUTENT [Suspect]
     Active Substance: SUNITINIB MALATE
     Indication: RENAL CELL CARCINOMA
     Dosage: 25 MG, CYCLIC FOR 28 DAYS, THEN OFF FOR 14 DAYS, THEN BACK TO 28 DAYS
  2. SUTENT [Suspect]
     Active Substance: SUNITINIB MALATE
     Dosage: 25 MG, CYCLIC FOR 28 DAYS, THEN OFF FOR 14 DAYS, THEN BACK TO 28 DAYS
     Dates: start: 20160517, end: 20160613
  3. SUTENT [Suspect]
     Active Substance: SUNITINIB MALATE
     Dosage: 25 MG, CYCLIC FOR 28 DAYS, THEN OFF FOR 14 DAYS, THEN BACK TO 28 DAYS

REACTIONS (4)
  - Nausea [Not Recovered/Not Resolved]
  - Blood potassium abnormal [Unknown]
  - Lymphadenopathy [Unknown]
  - Blood magnesium abnormal [Unknown]
